FAERS Safety Report 9518257 (Version 2)
Quarter: 2013Q3

REPORT INFORMATION
  Report Type: Report from Study
  Country: CA (occurrence: CA)
  Receive Date: 20130912
  Receipt Date: 20130916
  Transmission Date: 20140515
  Serious: No
  Sender: FDA-Public Use
  Company Number: CA-JNJFOC-20130901822

PATIENT
  Age: 31 Year
  Sex: Male

DRUGS (1)
  1. REMICADE [Suspect]
     Indication: CROHN^S DISEASE
     Dosage: 32 INFLIXIMAB INFUSION TILL DATE OF REPORT
     Route: 042

REACTIONS (3)
  - Rash [Unknown]
  - Oropharyngeal pain [Unknown]
  - Ear pain [Unknown]
